FAERS Safety Report 24073359 (Version 1)
Quarter: 2024Q3

REPORT INFORMATION
  Report Type: Spontaneous
  Country: US (occurrence: US)
  Receive Date: 20240710
  Receipt Date: 20240710
  Transmission Date: 20241017
  Serious: Yes (Hospitalization)
  Sender: TEVA
  Company Number: US-TEVA-VS-3218088

PATIENT
  Age: 52 Year
  Sex: Male

DRUGS (6)
  1. AJOVY [Suspect]
     Active Substance: FREMANEZUMAB-VFRM
     Indication: Migraine
     Dosage: 225/1.5 MG/ML
     Route: 065
  2. AJOVY [Suspect]
     Active Substance: FREMANEZUMAB-VFRM
  3. LAMICTAL [Concomitant]
     Active Substance: LAMOTRIGINE
  4. BRIVIACT [Concomitant]
     Active Substance: BRIVARACETAM
  5. NABUMETONE [Concomitant]
     Active Substance: NABUMETONE
  6. CHANTIX [Concomitant]
     Active Substance: VARENICLINE TARTRATE

REACTIONS (2)
  - Seizure [Unknown]
  - Blood pressure increased [Recovered/Resolved]
